FAERS Safety Report 10003327 (Version 1)
Quarter: 2014Q1

REPORT INFORMATION
  Report Type: Spontaneous
  Country: CN (occurrence: CN)
  Receive Date: 20140312
  Receipt Date: 20140312
  Transmission Date: 20141002
  Serious: Yes (Hospitalization)
  Sender: FDA-Public Use
  Company Number: PHHY2014CN026563

PATIENT
  Age: 53 Year
  Sex: Male

DRUGS (3)
  1. PREDNISONE [Suspect]
     Indication: IMMUNOSUPPRESSION
     Dosage: 50-60 MG, UNK
  2. DEXAMETHASONE [Suspect]
     Indication: IMMUNOSUPPRESSION
     Dosage: 5 MG, UNK
  3. METHOTREXATE [Suspect]
     Indication: IMMUNOSUPPRESSION
     Dosage: 15 MG, UNK

REACTIONS (8)
  - Respiratory failure [Recovered/Resolved]
  - Listeriosis [Recovered/Resolved]
  - Pyrexia [Recovered/Resolved]
  - Headache [Recovered/Resolved]
  - Vomiting [Recovered/Resolved]
  - Mental status changes [Recovered/Resolved]
  - Meningitis [Recovered/Resolved]
  - Pneumonia staphylococcal [Recovered/Resolved]
